FAERS Safety Report 6244367-0 (Version None)
Quarter: 2009Q2

REPORT INFORMATION
  Report Type: 
  Country: None (occurrence: None)
  Receive Date: 20090625
  Receipt Date: 20090611
  Transmission Date: 20091009
  Serious: Yes (Hospitalization, Other)
  Sender: FDA-Public Use
  Company Number: PHHY2009JP20848

PATIENT
  Sex: Male
  Weight: 71 kg

DRUGS (4)
  1. DIOVAN HCT [Suspect]
     Indication: HYPERTENSION
     Dosage: 1 DF/DAY
     Route: 048
     Dates: start: 20090513, end: 20090517
  2. DIOVAN [Suspect]
     Dosage: 80 MG/DAY
     Route: 048
     Dates: start: 20090426, end: 20090512
  3. CALSLOT [Concomitant]
     Dosage: 10 MG/DAY
     Route: 048
     Dates: start: 20090409, end: 20090518
  4. NU-LOTAN [Concomitant]
     Dosage: 25 MG DAILY
     Dates: start: 20090409, end: 20090425

REACTIONS (5)
  - ABASIA [None]
  - CEREBELLAR HAEMORRHAGE [None]
  - HYPERTENSION [None]
  - VERTIGO [None]
  - VOMITING [None]
